FAERS Safety Report 6722073-3 (Version None)
Quarter: 2010Q2

REPORT INFORMATION
  Report Type: 
  Country: None (occurrence: None)
  Receive Date: 20100505
  Receipt Date: 20100224
  Transmission Date: 20101027
  Serious: No
  Sender: FDA-Public Use
  Company Number: WAES 1002USA03828

PATIENT
  Age: 60 Year
  Sex: Male

DRUGS (7)
  1. ISENTRESS [Suspect]
     Indication: HIV INFECTION
     Dosage: 400 MG/BID/PO
     Route: 048
  2. RALTEGRAVIR [Suspect]
  3. TRUVADA [Suspect]
  4. SIMVASTATIN [Suspect]
     Dosage: PO
     Route: 048
  5. RITALIN [Suspect]
  6. TESTOSTERONE [Suspect]
  7. FENTANYL [Suspect]

REACTIONS (1)
  - DIARRHOEA [None]
